FAERS Safety Report 17982200 (Version 1)
Quarter: 2020Q3

REPORT INFORMATION
  Report Type: Spontaneous
  Country: US (occurrence: US)
  Receive Date: 20200703
  Receipt Date: 20200703
  Transmission Date: 20201103
  Serious: Yes (Life-Threatening)
  Sender: FDA-Public Use
  Company Number: None

PATIENT
  Age: 55 Year
  Sex: Male
  Weight: 85.9 kg

DRUGS (16)
  1. CISATRACURIUM DRIP [Concomitant]
     Dates: start: 20200701, end: 20200703
  2. ALBUTEROL 4MG [Concomitant]
     Dates: start: 20200701, end: 20200703
  3. CEFEPIME [Concomitant]
     Active Substance: CEFEPIME HYDROCHLORIDE
     Dates: start: 20200629, end: 20200702
  4. ENOXAPARIN 90MG [Concomitant]
     Dates: start: 20200629, end: 20200703
  5. FUROSEMIDE 20MG [Concomitant]
     Active Substance: FUROSEMIDE
     Dates: start: 20200629, end: 20200702
  6. MIDAZOLAM DRIP [Concomitant]
     Dates: start: 20200701, end: 20200703
  7. REMDESIVIR. [Suspect]
     Active Substance: REMDESIVIR
     Indication: COVID-19
     Route: 040
     Dates: start: 20200629, end: 20200701
  8. LINEZOLID 600MG [Concomitant]
     Active Substance: LINEZOLID
     Dates: start: 20200702, end: 20200703
  9. DEXAMETHASONE 6MG [Concomitant]
     Dates: start: 20200629, end: 20200703
  10. MEROPENEM 1G [Concomitant]
     Active Substance: MEROPENEM
     Dates: start: 20200702, end: 20200703
  11. PROPOFOL DRIP [Concomitant]
     Active Substance: PROPOFOL
     Dates: start: 20200701, end: 20200701
  12. FENTANYL DRIP [Concomitant]
     Dates: start: 20200701, end: 20200703
  13. NOREPINEPHRINE DRIP [Concomitant]
     Dates: start: 20200701, end: 20200703
  14. CHLORHEXIDINE MOUTHWASH [Concomitant]
     Active Substance: CHLORHEXIDINE
     Dates: start: 20200701, end: 20200703
  15. INSULIN LISPRO [Concomitant]
     Active Substance: INSULIN LISPRO
     Dates: start: 20200630, end: 20200703
  16. MULTIVITAMIN [Concomitant]
     Active Substance: VITAMINS
     Dates: start: 20200629, end: 20200703

REACTIONS (1)
  - Acute kidney injury [None]

NARRATIVE: CASE EVENT DATE: 20200702
